FAERS Safety Report 9766690 (Version 1)
Quarter: 2013Q4

REPORT INFORMATION
  Report Type: Spontaneous
  Country: US (occurrence: US)
  Receive Date: 20131217
  Receipt Date: 20131217
  Transmission Date: 20140711
  Serious: No
  Sender: FDA-Public Use
  Company Number: US-GLAXOSMITHKLINE-A1030361A

PATIENT
  Age: 77 Year
  Sex: Female

DRUGS (10)
  1. VOTRIENT [Suspect]
     Indication: RENAL CELL CARCINOMA
     Dosage: 600MG PER DAY
     Route: 048
     Dates: start: 20130511
  2. AMLODIPINE [Concomitant]
  3. BABY ASPIRIN [Concomitant]
  4. XANAX [Concomitant]
  5. SYNTHROID [Concomitant]
  6. OMEPRAZOLE [Concomitant]
  7. ALBUTEROL NEBULIZER [Concomitant]
  8. COMBIVENT [Concomitant]
  9. ZOMETA [Concomitant]
     Route: 042
  10. VITAMINS [Concomitant]

REACTIONS (1)
  - Protein urine present [Not Recovered/Not Resolved]
